FAERS Safety Report 16962369 (Version 1)
Quarter: 2019Q4

REPORT INFORMATION
  Report Type: Spontaneous
  Country: CA (occurrence: CA)
  Receive Date: 20191025
  Receipt Date: 20191025
  Transmission Date: 20200122
  Serious: Yes (Hospitalization, Other)
  Sender: FDA-Public Use
  Company Number: CA-TEVA-2019-CA-1126247

PATIENT
  Sex: Male

DRUGS (5)
  1. RITONAVIR/TIPRANAVIR [Interacting]
     Active Substance: RITONAVIR\TIPRANAVIR
     Indication: HIV INFECTION
     Dosage: 2 DOSAGE FORMS DAILY;
     Route: 048
  2. FLUCONAZOLE. [Suspect]
     Active Substance: FLUCONAZOLE
     Indication: HIV INFECTION
     Dosage: 200 MILLIGRAM DAILY;
     Route: 048
  3. DOLUTEGRAVIR [Suspect]
     Active Substance: DOLUTEGRAVIR
     Indication: HIV INFECTION
     Dosage: 400 MILLIGRAM DAILY;
     Route: 048
  4. ETRAVIRINE [Interacting]
     Active Substance: ETRAVIRINE
     Indication: HIV INFECTION
     Dosage: 1200 MILLIGRAM DAILY;
     Route: 048
  5. LAMIVUDINE. [Interacting]
     Active Substance: LAMIVUDINE
     Indication: HIV INFECTION
     Dosage: 300 MILLIGRAM DAILY;
     Route: 048

REACTIONS (11)
  - Mycobacterial infection [Unknown]
  - Viral load increased [Unknown]
  - Cytomegalovirus chorioretinitis [Unknown]
  - Drug interaction [Unknown]
  - Malabsorption [Unknown]
  - Drug resistance [Unknown]
  - Gastrointestinal disorder [Unknown]
  - Off label use [Unknown]
  - Viraemia [Unknown]
  - Opportunistic infection [Unknown]
  - CD4 lymphocytes decreased [Unknown]
